FAERS Safety Report 8036499-1 (Version None)
Quarter: 2012Q1

REPORT INFORMATION
  Report Type: 
  Country: None (occurrence: None)
  Receive Date: 20120111
  Receipt Date: 20120105
  Transmission Date: 20120608
  Serious: Yes (Hospitalization)
  Sender: FDA-Public Use
  Company Number: US-JNJFOC-20120101563

PATIENT
  Sex: Male
  Weight: 99.79 kg

DRUGS (4)
  1. RISPERDAL [Suspect]
     Indication: SCHIZOAFFECTIVE DISORDER
     Route: 048
  2. INVEGA [Suspect]
     Dosage: 2 TABLETS IN THE MORNING; 5 TABLETS BEDTIME
     Route: 048
     Dates: start: 20110901
  3. GEODON [Suspect]
     Indication: SCHIZOAFFECTIVE DISORDER
     Route: 065
     Dates: end: 20110101
  4. INVEGA [Suspect]
     Indication: SCHIZOAFFECTIVE DISORDER
     Route: 048

REACTIONS (3)
  - PHOTOSENSITIVITY REACTION [None]
  - DEPRESSION [None]
  - DRUG INEFFECTIVE [None]
